FAERS Safety Report 10172742 (Version 1)
Quarter: 2014Q2

REPORT INFORMATION
  Report Type: Report from Study
  Country: US (occurrence: US)
  Receive Date: 20140515
  Receipt Date: 20140515
  Transmission Date: 20141212
  Serious: Yes (Other)
  Sender: FDA-Public Use
  Company Number: US-ROCHE-1401597

PATIENT
  Sex: Male
  Weight: 90.8 kg

DRUGS (1)
  1. RITUXAN [Suspect]
     Indication: LYMPHOMA
     Route: 042
     Dates: start: 201403

REACTIONS (1)
  - Glycosylated haemoglobin increased [Not Recovered/Not Resolved]
